FAERS Safety Report 9250233 (Version 1)
Quarter: 2013Q2

REPORT INFORMATION
  Report Type: Spontaneous
  Country: FR (occurrence: FR)
  Receive Date: 20130424
  Receipt Date: 20130424
  Transmission Date: 20140414
  Serious: Yes (Other)
  Sender: FDA-Public Use
  Company Number: FR-009507513-1205FRA00050

PATIENT
  Sex: Female
  Weight: 70 kg

DRUGS (2)
  1. ISENTRESS [Suspect]
     Indication: HIV INFECTION
     Dosage: 400 MG, BID
     Route: 048
     Dates: start: 20091014, end: 20110726
  2. TRUVADA [Suspect]
     Indication: HIV INFECTION
     Dosage: 1 U, QD
     Route: 048
     Dates: start: 20070320

REACTIONS (1)
  - Lipodystrophy acquired [Not Recovered/Not Resolved]
